FAERS Safety Report 17508596 (Version 4)
Quarter: 2023Q2

REPORT INFORMATION
  Report Type: Spontaneous
  Country: GB (occurrence: GB)
  Receive Date: 20200306
  Receipt Date: 20230511
  Transmission Date: 20230722
  Serious: Yes (Life-Threatening, Hospitalization, Other)
  Sender: FDA-Public Use
  Company Number: GB-EMA-DD-20191028-ABDUL_J-173044

PATIENT
  Age: 45 Year
  Sex: Female
  Weight: 80 kg

DRUGS (62)
  1. DOCETAXEL [Suspect]
     Active Substance: DOCETAXEL
     Indication: Breast cancer metastatic
     Dosage: 140 MG, Q3W
     Route: 042
     Dates: start: 20150106, end: 20150424
  2. DOCETAXEL [Suspect]
     Active Substance: DOCETAXEL
     Dosage: 600 MG, Q3W
     Route: 065
     Dates: start: 20150217, end: 20160308
  3. DOCETAXEL [Suspect]
     Active Substance: DOCETAXEL
     Dosage: 120 MG, Q3W
     Route: 042
     Dates: start: 20150804, end: 20150804
  4. DOCETAXEL [Suspect]
     Active Substance: DOCETAXEL
     Dosage: 120 MG, Q3W
     Route: 042
     Dates: start: 20150804
  5. DOCETAXEL [Suspect]
     Active Substance: DOCETAXEL
     Dosage: 120 MG
     Route: 042
     Dates: start: 20150808, end: 20151117
  6. DOCETAXEL [Suspect]
     Active Substance: DOCETAXEL
     Dosage: 120 MG, Q3W
     Route: 065
     Dates: start: 20150814, end: 20151117
  7. DOCETAXEL [Suspect]
     Active Substance: DOCETAXEL
     Dosage: 600 MG, Q3W
     Route: 042
     Dates: start: 20151217, end: 20160308
  8. IBANDRONATE SODIUM [Suspect]
     Active Substance: IBANDRONATE SODIUM
     Indication: Metastases to bone
     Dosage: 50 MG, QD
     Route: 048
     Dates: start: 20150518
  9. TRASTUZUMAB [Suspect]
     Active Substance: TRASTUZUMAB
     Indication: Breast cancer metastatic
     Dosage: 483 MG, QD (LOADING DOSE)
     Route: 042
     Dates: start: 20150803, end: 20150803
  10. TRASTUZUMAB [Suspect]
     Active Substance: TRASTUZUMAB
     Indication: Breast cancer metastatic
     Dosage: 600 MG, Q3W
     Route: 058
     Dates: start: 20150825, end: 20151117
  11. TRASTUZUMAB [Suspect]
     Active Substance: TRASTUZUMAB
     Dosage: 600 MG, TIW (LOADING DOSE)
     Route: 041
     Dates: start: 20151217, end: 20160308
  12. TRASTUZUMAB [Suspect]
     Active Substance: TRASTUZUMAB
     Dosage: 600 MG, TIW
     Route: 058
     Dates: start: 20160308, end: 20160308
  13. TRASTUZUMAB [Suspect]
     Active Substance: TRASTUZUMAB
     Dosage: 600 MG, Q3W
     Route: 058
     Dates: start: 20160623
  14. TRASTUZUMAB [Suspect]
     Active Substance: TRASTUZUMAB
     Dosage: 600 MG, TIW
     Route: 042
     Dates: start: 20160623
  15. TRASTUZUMAB [Suspect]
     Active Substance: TRASTUZUMAB
     Dosage: 600 MG, TIW
     Route: 058
     Dates: start: 20160723
  16. TRASTUZUMAB [Suspect]
     Active Substance: TRASTUZUMAB
     Dosage: 600 MG, TIW
     Route: 058
     Dates: start: 20160723
  17. TRASTUZUMAB [Suspect]
     Active Substance: TRASTUZUMAB
     Dosage: 441 MG, TIW
     Route: 042
     Dates: start: 20150130, end: 20161003
  18. TRASTUZUMAB [Suspect]
     Active Substance: TRASTUZUMAB
     Dosage: 588 MG, QD
     Route: 042
     Dates: start: 20150105, end: 20150105
  19. EXEMESTANE [Suspect]
     Active Substance: EXEMESTANE
     Indication: Breast cancer metastatic
     Dosage: 25 MG, QD
     Route: 048
     Dates: start: 20150518
  20. EXEMESTANE [Suspect]
     Active Substance: EXEMESTANE
     Indication: Metastases to bone
     Dosage: UNK
     Route: 065
  21. EXEMESTANE [Suspect]
     Active Substance: EXEMESTANE
     Dosage: 600 MG, Q3W
     Route: 065
     Dates: start: 20180723
  22. ANASTROZOLE [Suspect]
     Active Substance: ANASTROZOLE
     Indication: Product used for unknown indication
     Dosage: 1 MG, QD
     Route: 048
     Dates: start: 20150616
  23. PERTUZUMAB [Suspect]
     Active Substance: PERTUZUMAB
     Indication: Breast cancer metastatic
     Dosage: 840 MG, QD
     Route: 042
     Dates: start: 20150102, end: 20150102
  24. PERTUZUMAB [Suspect]
     Active Substance: PERTUZUMAB
     Indication: Breast cancer metastatic
     Dosage: 420 MG, Q3W
     Route: 042
     Dates: start: 20150130, end: 20161024
  25. PERTUZUMAB [Suspect]
     Active Substance: PERTUZUMAB
     Dosage: 840 MG, ONCE/SINGLE (ONE CYCLE (LOADING DOSE))
     Route: 042
     Dates: start: 20150804, end: 20150804
  26. PERTUZUMAB [Suspect]
     Active Substance: PERTUZUMAB
     Dosage: 420 MG, TIW (MAINTAINANCE DOSE)
     Route: 042
     Dates: start: 20150825, end: 20151117
  27. PERTUZUMAB [Suspect]
     Active Substance: PERTUZUMAB
     Dosage: 420 MG, TIW (MAINTAINANCE DOSE)
     Route: 042
     Dates: start: 20151217, end: 20160308
  28. PERTUZUMAB [Suspect]
     Active Substance: PERTUZUMAB
     Dosage: 840 MG, 1X (LOADING DOSE)
     Route: 042
     Dates: start: 20160623, end: 20160623
  29. PERTUZUMAB [Suspect]
     Active Substance: PERTUZUMAB
     Dosage: 420 MG, QD (MAINTAINANCE DOSE)
     Route: 042
     Dates: start: 20160715
  30. PERTUZUMAB [Suspect]
     Active Substance: PERTUZUMAB
     Dosage: 600 MG, QD
     Route: 042
     Dates: start: 20151217, end: 20160308
  31. AROMASIN [Suspect]
     Active Substance: EXEMESTANE
     Indication: Breast cancer metastatic
     Dosage: 25 MG, QD
     Route: 048
  32. SYNVISC [Suspect]
     Active Substance: HYLAN G-F 20
     Indication: Product used for unknown indication
     Dosage: UNK
     Route: 065
     Dates: start: 20160308, end: 20160308
  33. SYNVISC [Suspect]
     Active Substance: HYLAN G-F 20
     Dosage: 600 MG, TIW
     Route: 065
     Dates: start: 20160623
  34. SYNVISC [Suspect]
     Active Substance: HYLAN G-F 20
     Dosage: 600 MG, TIW
     Route: 065
     Dates: start: 20160825
  35. TAXOTERE [Suspect]
     Active Substance: DOCETAXEL
     Indication: Breast cancer metastatic
     Dosage: 120 MG, TIW
     Route: 042
     Dates: start: 20150814
  36. SODIUM HYALURONATE [Suspect]
     Active Substance: HYALURONATE SODIUM
     Indication: Product used for unknown indication
     Dosage: 600 MILLIGRAM, 3 TIMES IN A WEEK, MAINTAINANCE DOSE
     Route: 065
     Dates: start: 20150825, end: 20151117
  37. SODIUM HYALURONATE [Suspect]
     Active Substance: HYALURONATE SODIUM
     Dosage: UNK
     Route: 065
     Dates: start: 20160308, end: 20160308
  38. SODIUM HYALURONATE [Suspect]
     Active Substance: HYALURONATE SODIUM
     Dosage: 600 MG, TIW
     Route: 065
     Dates: start: 20160523
  39. SODIUM HYALURONATE [Suspect]
     Active Substance: HYALURONATE SODIUM
     Dosage: 600 MG, TIW
     Route: 065
     Dates: start: 20160723
  40. DENOSUMAB [Concomitant]
     Active Substance: DENOSUMAB
     Indication: Product used for unknown indication
     Dosage: UNK
     Route: 065
  41. DENOSUMAB [Concomitant]
     Active Substance: DENOSUMAB
     Dosage: 120 MG, QMO
     Route: 058
     Dates: start: 20160127
  42. DENOSUMAB [Concomitant]
     Active Substance: DENOSUMAB
     Dosage: UNK
     Route: 065
     Dates: start: 20160127
  43. DENOSUMAB [Concomitant]
     Active Substance: DENOSUMAB
     Dosage: 8 MG
     Route: 058
     Dates: start: 20150803
  44. DEXAMETHASONE [Concomitant]
     Active Substance: DEXAMETHASONE
     Indication: Product used for unknown indication
     Dosage: 8 MG (FOR 3 DAYS EVERY 3 WEEKS)
     Route: 048
  45. DEXAMETHASONE [Concomitant]
     Active Substance: DEXAMETHASONE
     Dosage: FOR 3 DAYS EVERY 3 WEEKS
     Route: 048
     Dates: start: 20150803
  46. DEXAMETHASONE [Concomitant]
     Active Substance: DEXAMETHASONE
     Dosage: UNK
     Route: 065
     Dates: start: 20150803
  47. CALCIUM [Concomitant]
     Active Substance: CALCIUM
     Indication: Product used for unknown indication
     Dosage: UNK
     Route: 065
  48. CALCIUM [Concomitant]
     Active Substance: CALCIUM
     Dosage: UNK
     Route: 065
  49. IBANDRONIC ACID [Concomitant]
     Active Substance: IBANDRONIC ACID
     Indication: Product used for unknown indication
     Dosage: 50 MG, QD
     Route: 048
     Dates: start: 20150518
  50. XGEVA [Concomitant]
     Active Substance: DENOSUMAB
     Indication: Product used for unknown indication
     Dosage: 8 MG, TIW
     Route: 058
     Dates: start: 20150803
  51. XGEVA [Concomitant]
     Active Substance: DENOSUMAB
     Dosage: 24 MG (EVERY 3 DAYS (CUMULATIVE DOSE: 16.0 MG))
     Route: 058
     Dates: start: 20150803
  52. XGEVA [Concomitant]
     Active Substance: DENOSUMAB
     Dosage: 120 MG, QMO
     Route: 058
     Dates: start: 20160127, end: 201802
  53. XGEVA [Concomitant]
     Active Substance: DENOSUMAB
     Dosage: UNK, Q3W
     Route: 058
     Dates: start: 20150803
  54. XGEVA [Concomitant]
     Active Substance: DENOSUMAB
     Dosage: UNK, Q3W (1 EVERY 3 WEEKS; 3 DAYS 2 WEEKS)
     Route: 058
     Dates: start: 20150803
  55. PIPERACILLIN SODIUM\TAZOBACTAM SODIUM [Concomitant]
     Active Substance: PIPERACILLIN SODIUM\TAZOBACTAM SODIUM
     Indication: Product used for unknown indication
     Dosage: UNK
     Route: 065
     Dates: start: 20151130, end: 20151209
  56. PIPERACILLIN SODIUM\TAZOBACTAM SODIUM [Concomitant]
     Active Substance: PIPERACILLIN SODIUM\TAZOBACTAM SODIUM
     Dosage: 600 MG, Q3W
     Route: 058
     Dates: start: 20160723
  57. IRON [Concomitant]
     Active Substance: IRON
     Indication: Serum ferritin decreased
     Dosage: UNK
     Route: 065
  58. IRON [Concomitant]
     Active Substance: IRON
     Dosage: UNK
     Route: 065
  59. IRON [Concomitant]
     Active Substance: IRON
     Dosage: UNK
     Route: 048
     Dates: start: 20170927
  60. MEROPENEM [Concomitant]
     Active Substance: MEROPENEM
     Indication: Product used for unknown indication
     Dosage: 1 G, TID 1X/DAY
     Route: 042
     Dates: start: 20160918
  61. BENZYDAMINE HYDROCHLORIDE [Concomitant]
     Active Substance: BENZYDAMINE HYDROCHLORIDE
     Indication: Product used for unknown indication
     Dosage: 15 MG, QD
     Route: 065
     Dates: start: 20150308, end: 20150817
  62. BENZYDAMINE HYDROCHLORIDE [Concomitant]
     Active Substance: BENZYDAMINE HYDROCHLORIDE
     Dosage: 15 MG, QD
     Route: 065
     Dates: start: 20150315, end: 20150817

REACTIONS (23)
  - Vascular device infection [Recovered/Resolved]
  - Gastrooesophageal reflux disease [Recovered/Resolved]
  - Gingival swelling [Recovered/Resolved]
  - Mucosal inflammation [Recovered/Resolved]
  - Lymphoedema [Recovered/Resolved]
  - Diarrhoea [Recovered/Resolved]
  - Fatigue [Recovered/Resolved]
  - Fatigue [Recovered/Resolved]
  - Rash [Recovered/Resolved]
  - Ejection fraction decreased [Recovered/Resolved]
  - Ejection fraction decreased [Recovered/Resolved]
  - Ejection fraction decreased [Recovered/Resolved]
  - Hot flush [Unknown]
  - Influenza like illness [Recovered/Resolved]
  - Anaemia [Recovered/Resolved]
  - Epistaxis [Recovered/Resolved]
  - Alopecia [Recovered/Resolved]
  - Vascular device infection [Recovered/Resolved]
  - Device related infection [Recovered/Resolved]
  - Sepsis [Recovered/Resolved]
  - Osteonecrosis of jaw [Not Recovered/Not Resolved]
  - Fatigue [Recovered/Resolved]
  - Fatigue [Not Recovered/Not Resolved]

NARRATIVE: CASE EVENT DATE: 20150801
